FAERS Safety Report 5618669-2 (Version None)
Quarter: 2008Q1

REPORT INFORMATION
  Report Type: 
  Country: None (occurrence: None)
  Receive Date: 20080205
  Receipt Date: 20080205
  Transmission Date: 20080703
  Serious: Yes (Other)
  Sender: FDA-Public Use
  Company Number: None

PATIENT
  Age: 11 Year
  Sex: Female
  Weight: 40.8237 kg

DRUGS (1)
  1. TAMIFLU [Suspect]
     Indication: INFLUENZA IMMUNISATION
     Dosage: 75MG 1 TIME A DAY PO
     Route: 048
     Dates: start: 20080131, end: 20080201

REACTIONS (8)
  - ABDOMINAL PAIN UPPER [None]
  - ABNORMAL BEHAVIOUR [None]
  - CRYING [None]
  - DELUSION [None]
  - FEAR [None]
  - HALLUCINATION, AUDITORY [None]
  - MALAISE [None]
  - MEMORY IMPAIRMENT [None]
